FAERS Safety Report 19044810 (Version 1)
Quarter: 2021Q1

REPORT INFORMATION
  Report Type: Spontaneous
  Country: US (occurrence: US)
  Receive Date: 20210323
  Receipt Date: 20210323
  Transmission Date: 20210420
  Serious: Yes (Hospitalization, Other)
  Sender: FDA-Public Use
  Company Number: None

PATIENT
  Age: 22 Year
  Sex: Female
  Weight: 45.36 kg

DRUGS (5)
  1. SULFUR CONTAINING SUBSTANCES [Concomitant]
  2. MELATONIN [Concomitant]
     Active Substance: MELATONIN
  3. PARAGARD T 380A [Suspect]
     Active Substance: COPPER
     Dates: start: 20160601, end: 20201205
  4. VALACYCLOVIR HCL [Concomitant]
     Active Substance: VALACYCLOVIR HYDROCHLORIDE
  5. PENCILLIN [Concomitant]
     Active Substance: PENICILLIN

REACTIONS (7)
  - Abortion [None]
  - Complication associated with device [None]
  - Product quality issue [None]
  - Pregnancy with contraceptive device [None]
  - Complication of device removal [None]
  - Device dislocation [None]
  - Device breakage [None]

NARRATIVE: CASE EVENT DATE: 20201205
